FAERS Safety Report 13159470 (Version 3)
Quarter: 2019Q1

REPORT INFORMATION
  Report Type: Spontaneous
  Country: US (occurrence: US)
  Receive Date: 20170127
  Receipt Date: 20190305
  Transmission Date: 20190417
  Serious: Yes (Death)
  Sender: FDA-Public Use
  Company Number: US-BIOGEN-2017BI00347329

PATIENT
  Age: 72 Year
  Sex: Male

DRUGS (1)
  1. TECFIDERA [Suspect]
     Active Substance: DIMETHYL FUMARATE
     Indication: MULTIPLE SCLEROSIS
     Route: 050
     Dates: start: 20130429

REACTIONS (1)
  - Death [Fatal]

NARRATIVE: CASE EVENT DATE: 20170117
